FAERS Safety Report 14590411 (Version 1)
Quarter: 2018Q1

REPORT INFORMATION
  Report Type: Spontaneous
  Country: FR (occurrence: FR)
  Receive Date: 20180302
  Receipt Date: 20180302
  Transmission Date: 20180509
  Serious: Yes (Other)
  Sender: FDA-Public Use
  Company Number: FR-AUROBINDO-AUR-APL-2018-008568

PATIENT
  Age: 16 Year
  Sex: Female

DRUGS (1)
  1. IBUPROFEN. [Suspect]
     Active Substance: IBUPROFEN
     Indication: HEADACHE
     Dosage: 400 MILLIGRAM IN TOTAL
     Route: 048
     Dates: start: 20160901

REACTIONS (1)
  - Face oedema [Recovered/Resolved]

NARRATIVE: CASE EVENT DATE: 20160901
